FAERS Safety Report 21522259 (Version 2)
Quarter: 2022Q4

REPORT INFORMATION
  Report Type: Report from Study
  Country: US (occurrence: US)
  Receive Date: 20221028
  Receipt Date: 20221103
  Transmission Date: 20230113
  Serious: Yes (Hospitalization)
  Sender: FDA-Public Use
  Company Number: US-ABBVIE-4176145

PATIENT
  Age: 40 Year
  Sex: Female

DRUGS (1)
  1. RINVOQ [Suspect]
     Active Substance: UPADACITINIB
     Indication: Product used for unknown indication
     Route: 048
     Dates: start: 20221023

REACTIONS (10)
  - Hospitalisation [Unknown]
  - Joint stiffness [Unknown]
  - Palpitations [Unknown]
  - Muscle spasms [Unknown]
  - Dyspnoea [Unknown]
  - Insomnia [Unknown]
  - Pollakiuria [Unknown]
  - Swelling face [Unknown]
  - Abdominal distension [Unknown]
  - Tremor [Unknown]

NARRATIVE: CASE EVENT DATE: 20221001
